FAERS Safety Report 12180527 (Version 1)
Quarter: 2016Q1

REPORT INFORMATION
  Report Type: Spontaneous
  Country: US (occurrence: US)
  Receive Date: 20160315
  Receipt Date: 20160315
  Transmission Date: 20160526
  Serious: No
  Sender: FDA-Public Use
  Company Number: US-WARNER CHILCOTT, LLC-1049072

PATIENT
  Age: 59 Year
  Sex: Female

DRUGS (1)
  1. ESTRACE [Suspect]
     Active Substance: ESTRADIOL
     Indication: OESTROGEN REPLACEMENT THERAPY
     Route: 067
     Dates: start: 201512, end: 201512

REACTIONS (4)
  - Fungal infection [None]
  - Vulvovaginal burning sensation [None]
  - Vulvovaginal pruritus [None]
  - Vulvovaginal pain [None]
